FAERS Safety Report 4595491-X (Version None)
Quarter: 2005Q1

REPORT INFORMATION
  Report Type: 
  Country: None (occurrence: None)
  Receive Date: 20050302
  Receipt Date: 20050221
  Transmission Date: 20050727
  Serious: Yes (Hospitalization)
  Sender: FDA-Public Use
  Company Number: JP-JNJFOC-20041207275

PATIENT
  Sex: Male
  Weight: 76 kg

DRUGS (17)
  1. REMICADE [Suspect]
     Indication: CROHN'S DISEASE
     Dosage: FIRST DOSE
     Route: 042
  2. RHEUMATREX [Concomitant]
  3. PENTASA [Concomitant]
     Indication: CROHN'S DISEASE
     Route: 049
  4. LOPEMIN [Concomitant]
     Route: 049
  5. BIOFERMIN [Concomitant]
     Route: 049
  6. BIOFERMIN [Concomitant]
     Route: 049
  7. BIOFERMIN [Concomitant]
     Route: 049
  8. PREDONINE [Concomitant]
  9. PREDONINE [Concomitant]
  10. PREDONINE [Concomitant]
  11. PREDONINE [Concomitant]
  12. IMURAN [Concomitant]
     Indication: CROHN'S DISEASE
  13. FERROMINE [Concomitant]
  14. WARFARIN SODIUM [Concomitant]
  15. WARFARIN SODIUM [Concomitant]
  16. WARFARIN SODIUM [Concomitant]
  17. WARFARIN SODIUM [Concomitant]

REACTIONS (6)
  - GASTROINTESTINAL NEOPLASM [None]
  - HYDRONEPHROSIS [None]
  - INTESTINAL STENOSIS [None]
  - PYELONEPHRITIS [None]
  - URETERIC DILATATION [None]
  - URINARY TRACT NEOPLASM [None]
